FAERS Safety Report 4402084-3 (Version None)
Quarter: 2004Q3

REPORT INFORMATION
  Report Type: 
  Country: None (occurrence: None)
  Receive Date: 20040714
  Receipt Date: 20040630
  Transmission Date: 20050211
  Serious: Yes (Other)
  Sender: FDA-Public Use
  Company Number: 2004222075US

PATIENT
  Sex: Male

DRUGS (1)
  1. R-GENE 10 [Suspect]
     Dates: start: 20040618, end: 20040618

REACTIONS (9)
  - BLADDER DISORDER [None]
  - DYSURIA [None]
  - GLOMERULONEPHRITIS PROLIFERATIVE [None]
  - HAEMATURIA [None]
  - KIDNEY ENLARGEMENT [None]
  - MICTURITION URGENCY [None]
  - POLLAKIURIA [None]
  - THROMBOSIS [None]
  - URINARY TRACT INFECTION [None]
